FAERS Safety Report 8321682-8 (Version None)
Quarter: 2012Q2

REPORT INFORMATION
  Report Type: 
  Country: None (occurrence: None)
  Receive Date: 20120430
  Receipt Date: 20091103
  Transmission Date: 20120825
  Serious: No
  Sender: FDA-Public Use
  Company Number: US-TEVA-2009012079

PATIENT
  Sex: Female
  Weight: 90.346 kg

DRUGS (2)
  1. NUVIGIL [Suspect]
     Indication: SLEEP APNOEA SYNDROME
     Dosage: 150 MILLIGRAM;
     Route: 048
     Dates: start: 20091001, end: 20091001
  2. NUVIGIL [Suspect]
     Indication: SOMNOLENCE

REACTIONS (1)
  - DIPLOPIA [None]
